FAERS Safety Report 9850897 (Version 1)
Quarter: 2014Q1

REPORT INFORMATION
  Report Type: Spontaneous
  Country: US (occurrence: None)
  Receive Date: 20140124
  Receipt Date: 20140124
  Transmission Date: 20141002
  Serious: Yes (Death)
  Sender: FDA-Public Use
  Company Number: 2014AP000548

PATIENT
  Age: 37 Year
  Sex: Male

DRUGS (6)
  1. AMLODIPINE BESYLATE TABLETS [Suspect]
     Route: 048
  2. OMEPRAZOLE DELAYED-RELEASE CAPSULES, USP [Suspect]
     Route: 048
  3. METOPROLOL [Suspect]
     Route: 048
  4. ETHANOL [Suspect]
     Route: 048
  5. LISINOPRIL TABLETS [Suspect]
     Route: 048
  6. SIMVASTATIN [Suspect]
     Route: 048

REACTIONS (2)
  - Completed suicide [None]
  - Cardio-respiratory arrest [None]
